FAERS Safety Report 6945979-9 (Version None)
Quarter: 2010Q3

REPORT INFORMATION
  Report Type: 
  Country: None (occurrence: None)
  Receive Date: 20100827
  Receipt Date: 20100819
  Transmission Date: 20110219
  Serious: Yes (Hospitalization, Other)
  Sender: FDA-Public Use
  Company Number: FR-AMGEN-QUU429517

PATIENT
  Sex: Male

DRUGS (2)
  1. NPLATE [Suspect]
     Indication: IDIOPATHIC THROMBOCYTOPENIC PURPURA
     Dates: start: 20100601, end: 20100716
  2. AUGMENTIN '125' [Concomitant]
     Route: 058
     Dates: start: 20100604, end: 20100716

REACTIONS (8)
  - AGRANULOCYTOSIS [None]
  - BONE MARROW MYELOGRAM ABNORMAL [None]
  - DRUG INEFFECTIVE [None]
  - HAEMOGLOBIN DECREASED [None]
  - MYELODYSPLASTIC SYNDROME [None]
  - MYELOFIBROSIS [None]
  - NEUTROPENIA [None]
  - THROMBOCYTOPENIA [None]
